FAERS Safety Report 8586065-4 (Version None)
Quarter: 2012Q3

REPORT INFORMATION
  Report Type: 
  Country: None (occurrence: None)
  Receive Date: 20120810
  Receipt Date: 20120606
  Transmission Date: 20120928
  Serious: Yes (Death)
  Sender: FDA-Public Use
  Company Number: FR-ROCHE-1095808

PATIENT
  Sex: Male

DRUGS (6)
  1. CAPECITABINE [Suspect]
     Indication: PRODUCT USED FOR UNKNOWN INDICATION
     Dates: start: 20080828, end: 20080919
  2. LEUCOVORIN CALCIUM [Concomitant]
     Dates: start: 20080825, end: 20110127
  3. FLUOROURACIL [Concomitant]
     Dates: start: 20080825, end: 20110127
  4. AVASTIN [Suspect]
     Indication: COLON CANCER
  5. IRINOTECAN HCL [Concomitant]
     Dates: start: 20080825, end: 20110127
  6. OXALIPLATIN [Concomitant]
     Dates: start: 20080828, end: 20080919

REACTIONS (5)
  - NAUSEA [None]
  - ASTHENIA [None]
  - DEATH [None]
  - DIARRHOEA [None]
  - EPISTAXIS [None]
